FAERS Safety Report 7866216-7 (Version None)
Quarter: 2011Q4

REPORT INFORMATION
  Report Type: 
  Country: None (occurrence: None)
  Receive Date: 20111028
  Receipt Date: 20110512
  Transmission Date: 20120403
  Serious: No
  Sender: FDA-Public Use
  Company Number: US-GLAXOSMITHKLINE-A0927153A

PATIENT
  Age: 78 Year
  Sex: Male

DRUGS (6)
  1. OXYGEN THERAPY [Concomitant]
  2. ADVAIR DISKUS 100/50 [Suspect]
     Indication: PRODUCT USED FOR UNKNOWN INDICATION
     Dosage: 1PUFF TWICE PER DAY
     Route: 055
     Dates: start: 20060101
  3. CLONAZEPAM [Concomitant]
  4. COMBIVENT [Concomitant]
  5. DILTIAZEM HCL [Concomitant]
  6. XANAX [Concomitant]

REACTIONS (1)
  - DYSPNOEA [None]
